FAERS Safety Report 9748262 (Version 1)
Quarter: 2013Q4

REPORT INFORMATION
  Report Type: Spontaneous
  Country: FR (occurrence: FR)
  Receive Date: 20131212
  Receipt Date: 20131212
  Transmission Date: 20140711
  Serious: Yes (Hospitalization)
  Sender: FDA-Public Use
  Company Number: FR-JNJFOC-20131204646

PATIENT
  Age: 86 Year
  Sex: Male

DRUGS (11)
  1. XARELTO [Suspect]
     Indication: ATRIAL FIBRILLATION
     Route: 048
     Dates: start: 20130927
  2. XARELTO [Suspect]
     Indication: ATRIAL FIBRILLATION
     Route: 048
     Dates: start: 20130730, end: 20130902
  3. XARELTO [Suspect]
     Indication: ATRIAL FIBRILLATION
     Route: 048
     Dates: end: 20130716
  4. ISOPTINE [Concomitant]
     Route: 048
     Dates: end: 20131017
  5. COOLMETEC [Concomitant]
     Route: 048
     Dates: end: 20130810
  6. LASILIX [Concomitant]
     Route: 065
     Dates: start: 20130626
  7. FLIXOTIDE [Concomitant]
     Route: 065
  8. BRICANYL [Concomitant]
     Route: 065
  9. ATROVENT [Concomitant]
     Route: 065
  10. SPIRIVA [Concomitant]
     Route: 065
  11. NITRIDERM [Concomitant]
     Route: 065
     Dates: start: 20130809, end: 20131001

REACTIONS (3)
  - Gastrointestinal haemorrhage [Not Recovered/Not Resolved]
  - Anaemia [Not Recovered/Not Resolved]
  - Cardiac failure [Not Recovered/Not Resolved]
